FAERS Safety Report 10906102 (Version 4)
Quarter: 2017Q4

REPORT INFORMATION
  Report Type: Report from Study
  Country: KR (occurrence: KR)
  Receive Date: 20150311
  Receipt Date: 20171113
  Transmission Date: 20180320
  Serious: Yes (Other)
  Sender: FDA-Public Use
  Company Number: KR-GILEAD-2015-0140600

PATIENT
  Sex: Male

DRUGS (1)
  1. TENOFOVIR DISOPROXIL FUMARATE. [Suspect]
     Active Substance: TENOFOVIR DISOPROXIL FUMARATE
     Indication: PRODUCT USED FOR UNKNOWN INDICATION
     Route: 065

REACTIONS (5)
  - Gallbladder polyp [Not Recovered/Not Resolved]
  - Duodenal ulcer [Not Recovered/Not Resolved]
  - Gastric ulcer [Recovered/Resolved]
  - Hepatocellular carcinoma [Not Recovered/Not Resolved]
  - Intestinal metaplasia [Not Recovered/Not Resolved]

NARRATIVE: CASE EVENT DATE: 20140813
